FAERS Safety Report 4761923-7 (Version None)
Quarter: 2005Q3

REPORT INFORMATION
  Report Type: 
  Country: None (occurrence: None)
  Receive Date: 20050831
  Receipt Date: 20050719
  Transmission Date: 20060218
  Serious: Yes (Other)
  Sender: FDA-Public Use
  Company Number: 244336

PATIENT
  Age: 65 Year
  Sex: Female

DRUGS (4)
  1. NOVOLOG MIX 70/30 [Suspect]
     Indication: INSULIN-REQUIRING TYPE II DIABETES MELLITUS
     Dosage: SINGLE, SUBCUTANEOUS
     Route: 058
     Dates: start: 20050522, end: 20050522
  2. GLUCOPHAGE ^ABIC^ (METFORMIN HYDROCHLORIDE) TABLET, 850 MG [Concomitant]
  3. GLUCOTROL [Concomitant]
  4. AVANDIA [Concomitant]

REACTIONS (1)
  - HYPERSENSITIVITY [None]
